FAERS Safety Report 21312263 (Version 1)
Quarter: 2022Q3

REPORT INFORMATION
  Report Type: Spontaneous
  Country: US (occurrence: None)
  Receive Date: 20220909
  Receipt Date: 20220909
  Transmission Date: 20221026
  Serious: No
  Sender: FDA-Public Use
  Company Number: US-ARIS GLOBAL-202205-0864

PATIENT
  Sex: Female

DRUGS (23)
  1. OXERVATE [Suspect]
     Active Substance: CENEGERMIN-BKBJ
     Indication: Keratitis
     Route: 047
     Dates: start: 20220414
  2. CLOPIDOGREL [Concomitant]
     Active Substance: CLOPIDOGREL BISULFATE
  3. LEVOTHYROXINE SODIUM [Concomitant]
     Active Substance: LEVOTHYROXINE SODIUM
  4. VITAMIN D3 [Concomitant]
     Active Substance: CHOLECALCIFEROL
  5. CRANBERRY [Concomitant]
     Active Substance: CRANBERRY
  6. MAGNESIUM [Concomitant]
     Active Substance: MAGNESIUM
  7. ZINC [Concomitant]
     Active Substance: ZINC
  8. MELATONIN [Concomitant]
     Active Substance: MELATONIN
  9. TART CHERRY [Concomitant]
     Dosage: 30-250-75
  10. FISH OIL [Concomitant]
     Active Substance: FISH OIL
  11. GLUCOSAMINE-CHONDROITIN-MSM [Concomitant]
  12. GARLIC [Concomitant]
     Active Substance: GARLIC
  13. TYLENOL EXTRA STRENGTH [Concomitant]
     Active Substance: ACETAMINOPHEN
  14. NYSTATIN [Concomitant]
     Active Substance: NYSTATIN
     Dosage: 10000/GRAM
  15. GABAPENTIN [Concomitant]
     Active Substance: GABAPENTIN
  16. ALLOPURINOL [Concomitant]
     Active Substance: ALLOPURINOL
  17. ASPIRIN [Concomitant]
     Active Substance: ASPIRIN
  18. ATORVASTATIN CALCIUM [Concomitant]
     Active Substance: ATORVASTATIN CALCIUM
  19. FUROSEMIDE [Concomitant]
     Active Substance: FUROSEMIDE
  20. METOLAZONE [Concomitant]
     Active Substance: METOLAZONE
  21. POTASSIUM CHLORIDE [Concomitant]
     Active Substance: POTASSIUM CHLORIDE
  22. CARVEDILOL [Concomitant]
     Active Substance: CARVEDILOL
  23. HUMULIN 70-30 [Concomitant]
     Dosage: 70-30/ML VIAL

REACTIONS (2)
  - Eye pain [Unknown]
  - Eye irritation [Unknown]
